FAERS Safety Report 19804709 (Version 2)
Quarter: 2021Q4

REPORT INFORMATION
  Report Type: Spontaneous
  Country: US (occurrence: US)
  Receive Date: 20210908
  Receipt Date: 20211019
  Transmission Date: 20220303
  Serious: No
  Sender: FDA-Public Use
  Company Number: US-AIMMUNE THERAPEUTICS, INC.-2021AIMT00522

PATIENT

DRUGS (2)
  1. PALFORZIA [Suspect]
     Active Substance: PEANUT
     Indication: Food allergy
     Dosage: 300 MG, 1X/DAY
     Route: 048
     Dates: start: 20210811
  2. PALFORZIA [Suspect]
     Active Substance: PEANUT
     Dosage: 300 MG, ONCE, LAST DOSE PRIOR TO EVENT
     Route: 048
     Dates: start: 202108, end: 202108

REACTIONS (4)
  - COVID-19 [Unknown]
  - Ageusia [Unknown]
  - Pain [Unknown]
  - Cough [Unknown]

NARRATIVE: CASE EVENT DATE: 20210824
